FAERS Safety Report 7663904-2 (Version None)
Quarter: 2011Q3

REPORT INFORMATION
  Report Type: 
  Country: None (occurrence: None)
  Receive Date: 20110805
  Receipt Date: 20100728
  Transmission Date: 20111222
  Serious: No
  Sender: FDA-Public Use
  Company Number: US-ABBOTT-10P-163-0661972-00

PATIENT
  Sex: Female
  Weight: 61.744 kg

DRUGS (6)
  1. PULMICORT [Concomitant]
     Indication: ASTHMA
  2. NIASPAN [Suspect]
     Indication: BLOOD CHOLESTEROL INCREASED
     Dosage: AT HOUR OF SLEEP
     Route: 048
     Dates: start: 20100721, end: 20100726
  3. NAPROXEN (ALEVE) [Concomitant]
     Indication: PRODUCT USED FOR UNKNOWN INDICATION
     Dosage: LIQUID GEL CAPS
  4. LEVOXYL [Concomitant]
     Indication: THYROID DISORDER
  5. CALCIUM ACETATE [Concomitant]
     Indication: PRODUCT USED FOR UNKNOWN INDICATION
     Route: 048
  6. PREMARIN [Concomitant]
     Indication: OESTROGEN REPLACEMENT THERAPY

REACTIONS (7)
  - OEDEMA MOUTH [None]
  - HYPERHIDROSIS [None]
  - PRURITUS [None]
  - FEELING HOT [None]
  - ERYTHEMA [None]
  - URTICARIA [None]
  - SWELLING FACE [None]
